FAERS Safety Report 4287372-6 (Version None)
Quarter: 2004Q1

REPORT INFORMATION
  Report Type: 
  Country: None (occurrence: None)
  Receive Date: 20040205
  Receipt Date: 20040115
  Transmission Date: 20041129
  Serious: Yes (Hospitalization)
  Sender: FDA-Public Use
  Company Number: A02200400168

PATIENT
  Age: 32 Year
  Sex: Female

DRUGS (3)
  1. ELOXATIN - (OXALIPLATIN) - POWDER - 5 MG/ML [Suspect]
     Indication: COLON CANCER METASTATIC
     Dosage: INTRAVENOUS NOS
     Route: 042
     Dates: start: 20040112, end: 20040112
  2. FLUOROURACIL [Suspect]
     Dosage: INTRAVENOUS NOS
     Route: 042
     Dates: start: 20040112, end: 20040112
  3. ACIDE  FOLINIQUE (FOLINIC ACID) [Concomitant]

REACTIONS (4)
  - AGITATION [None]
  - CONFUSIONAL STATE [None]
  - DYSARTHRIA [None]
  - ENCEPHALOPATHY [None]
